FAERS Safety Report 16379534 (Version 1)
Quarter: 2019Q2

REPORT INFORMATION
  Report Type: Spontaneous
  Country: US (occurrence: US)
  Receive Date: 20190424
  Receipt Date: 20190424
  Transmission Date: 20190711
  Serious: Yes (Other)
  Sender: FDA-Public Use
  Company Number: None

PATIENT
  Sex: Female
  Weight: 77.11 kg

DRUGS (15)
  1. KISQALI [Suspect]
     Active Substance: RIBOCICLIB
     Indication: BREAST CANCER
     Dosage: 600 MG  QD 3 WK ON 1 WK OFF ORAL
     Route: 048
     Dates: start: 20190312, end: 20190424
  2. TYLENOL [Concomitant]
     Active Substance: ACETAMINOPHEN
  3. FLONASE [Concomitant]
     Active Substance: FLUTICASONE PROPIONATE
  4. LYSINE [Concomitant]
     Active Substance: LYSINE
  5. NORVASC [Concomitant]
     Active Substance: AMLODIPINE BESYLATE
  6. PEPCID [Concomitant]
     Active Substance: FAMOTIDINE
  7. MULTIVITAMIN [Concomitant]
     Active Substance: VITAMINS
  8. TEARS [Concomitant]
     Active Substance: LANOLIN\PARAFFIN
  9. CRANBERRY. [Concomitant]
     Active Substance: CRANBERRY
  10. GLUCOSAMINE [Concomitant]
     Active Substance: GLUCOSAMINE
  11. CALCIUM [Concomitant]
     Active Substance: CALCIUM
  12. MILK THISTLE EXTRACT [Concomitant]
     Active Substance: DIETARY SUPPLEMENT\HERBALS\MILK THISTLE
  13. TURMERIC [Concomitant]
     Active Substance: HERBALS\TURMERIC
  14. ZOFRAN [Concomitant]
     Active Substance: ONDANSETRON HYDROCHLORIDE
  15. NEXIUM [Concomitant]
     Active Substance: ESOMEPRAZOLE MAGNESIUM

REACTIONS (1)
  - Disease progression [None]
